FAERS Safety Report 9258556 (Version 1)
Quarter: 2013Q2

REPORT INFORMATION
  Report Type: Spontaneous
  Country: US (occurrence: None)
  Receive Date: 20130425
  Receipt Date: 20130425
  Transmission Date: 20140414
  Serious: No
  Sender: FDA-Public Use
  Company Number: None

PATIENT
  Sex: Female

DRUGS (1)
  1. Z-PACK [Suspect]

REACTIONS (3)
  - Palpitations [None]
  - Myocardial infarction [None]
  - Respiratory arrest [None]
